FAERS Safety Report 4928581-X (Version None)
Quarter: 2006Q1

REPORT INFORMATION
  Report Type: 
  Country: None (occurrence: None)
  Receive Date: 20060223
  Receipt Date: 20060202
  Transmission Date: 20060701
  Serious: Yes (Hospitalization)
  Sender: FDA-Public Use
  Company Number: US200602000660

PATIENT
  Age: 76 Year
  Sex: Male

DRUGS (9)
  1. CYMBALTA [Suspect]
     Dosage: 20 MG
  2. ZOLOFT [Concomitant]
  3. NIACIN (NIACIN) TABLET [Concomitant]
  4. GABAPENTIN [Concomitant]
  5. IRON, VITAMIN B COMPLEX + VITAMIN C (IRON, VITAMIN B COMPLEX + VITAMIN [Concomitant]
  6. ASA (ASPIRIN (ACETYLSALICYLIC ACID)) CAPSULE [Concomitant]
  7. OMEPRAZOLE [Concomitant]
  8. CIPRO [Concomitant]
  9. ROXICET [Concomitant]

REACTIONS (3)
  - DELUSION [None]
  - HALLUCINATION [None]
  - URINARY TRACT INFECTION [None]
